FAERS Safety Report 18111874 (Version 1)
Quarter: 2020Q3

REPORT INFORMATION
  Report Type: Report from Study
  Country: None (occurrence: US)
  Receive Date: 20200804
  Receipt Date: 20200804
  Transmission Date: 20201103
  Serious: Yes (Disabling)
  Sender: FDA-Public Use
  Company Number: US-ABBVIE-20K-163-3500546-00

PATIENT
  Sex: Female

DRUGS (3)
  1. HUMIRA [Suspect]
     Active Substance: ADALIMUMAB
     Indication: PSORIATIC ARTHROPATHY
     Dosage: CITRATE FREE
     Route: 058
  2. HUMIRA [Suspect]
     Active Substance: ADALIMUMAB
     Indication: ANKYLOSING SPONDYLITIS
     Dosage: CITRATE FREE
     Route: 058
  3. HUMIRA [Suspect]
     Active Substance: ADALIMUMAB
     Indication: RHEUMATOID ARTHRITIS

REACTIONS (8)
  - Drug ineffective [Unknown]
  - Hidradenitis [Recovering/Resolving]
  - Vitamin D decreased [Recovering/Resolving]
  - Arthralgia [Recovering/Resolving]
  - Adverse drug reaction [Unknown]
  - Weight decreased [Recovering/Resolving]
  - Disability [Recovering/Resolving]
  - Liver function test increased [Unknown]

NARRATIVE: CASE EVENT DATE: 2011
